FAERS Safety Report 22005832 (Version 1)
Quarter: 2023Q1

REPORT INFORMATION
  Report Type: Spontaneous
  Country: US (occurrence: US)
  Receive Date: 20230217
  Receipt Date: 20230217
  Transmission Date: 20230417
  Serious: No
  Sender: FDA-Public Use
  Company Number: US-BAYER-2023A011118

PATIENT
  Age: 79 Year
  Sex: Female

DRUGS (5)
  1. MIRALAX [Suspect]
     Active Substance: POLYETHYLENE GLYCOL 3350
     Indication: Abdominal distension
     Dosage: 1 DF
     Route: 048
     Dates: start: 20230110
  2. POTASSIUM [Suspect]
     Active Substance: POTASSIUM
     Indication: Product used for unknown indication
     Dosage: 2 DF
     Route: 048
  3. NIFEDIPINE [Suspect]
     Active Substance: NIFEDIPINE
     Dosage: 2 DF
  4. SYNTHROID [Suspect]
     Active Substance: LEVOTHYROXINE SODIUM
  5. TRIAMTERENE [Suspect]
     Active Substance: TRIAMTERENE
     Dosage: 37.5 MG
     Route: 048

REACTIONS (1)
  - Extra dose administered [Not Recovered/Not Resolved]
